FAERS Safety Report 5680084-3 (Version None)
Quarter: 2008Q1

REPORT INFORMATION
  Report Type: 
  Country: None (occurrence: None)
  Receive Date: 20080326
  Receipt Date: 20080317
  Transmission Date: 20080703
  Serious: No
  Sender: FDA-Public Use
  Company Number: US-BAYER-200817334NA

PATIENT
  Age: 22 Year
  Sex: Male
  Weight: 57 kg

DRUGS (1)
  1. MAGNEVIST [Suspect]
     Indication: NUCLEAR MAGNETIC RESONANCE IMAGING BRAIN
     Route: 042
     Dates: start: 20080317, end: 20080317

REACTIONS (2)
  - BLOOD PRESSURE SYSTOLIC INCREASED [None]
  - URTICARIA [None]
